FAERS Safety Report 21658306 (Version 1)
Quarter: 2022Q4

REPORT INFORMATION
  Report Type: Spontaneous
  Country: US (occurrence: None)
  Receive Date: 20221128
  Receipt Date: 20221128
  Transmission Date: 20230113
  Serious: Yes (Life-Threatening, Hospitalization)
  Sender: FDA-Public Use
  Company Number: None

PATIENT
  Age: 82 Year
  Sex: Female

DRUGS (2)
  1. SACUBITRIL\VALSARTAN [Suspect]
     Active Substance: SACUBITRIL\VALSARTAN
  2. FUROSEMIDE [Suspect]
     Active Substance: FUROSEMIDE

REACTIONS (2)
  - Fall [None]
  - Acute kidney injury [None]

NARRATIVE: CASE EVENT DATE: 20220513
